FAERS Safety Report 18126628 (Version 2)
Quarter: 2020Q3

REPORT INFORMATION
  Report Type: Report from Study
  Country: MX (occurrence: MX)
  Receive Date: 20200809
  Receipt Date: 20200825
  Transmission Date: 20201103
  Serious: Yes (Other)
  Sender: FDA-Public Use
  Company Number: NVSC2020MX220753

PATIENT
  Age: 46 Year
  Sex: Female
  Weight: 70 kg

DRUGS (2)
  1. CO?DIOVAN [Suspect]
     Active Substance: HYDROCHLOROTHIAZIDE\VALSARTAN
     Indication: HYPERTENSION
     Dosage: 1 DF, BID(12.5/160)
     Route: 048
     Dates: start: 2016
  2. NORDET [Concomitant]
     Indication: CONTRACEPTION
     Dosage: 5 MG, QD
     Route: 048

REACTIONS (3)
  - Visual impairment [Recovering/Resolving]
  - Diabetes mellitus [Recovering/Resolving]
  - Product prescribing error [Unknown]

NARRATIVE: CASE EVENT DATE: 201604
